FAERS Safety Report 24143297 (Version 1)
Quarter: 2024Q3

REPORT INFORMATION
  Report Type: Spontaneous
  Country: CN (occurrence: CN)
  Receive Date: 20240726
  Receipt Date: 20240726
  Transmission Date: 20241017
  Serious: Yes (Life-Threatening, Other)
  Sender: PFIZER
  Company Number: CN-PFIZER INC-PV202400096884

PATIENT
  Age: 72 Year
  Sex: Male
  Weight: 60 kg

DRUGS (1)
  1. ZYVOX [Suspect]
     Active Substance: LINEZOLID
     Indication: Pneumonia
     Dosage: 0.6 G, 2X/DAY (EVERY 12 HOURS)
     Route: 041
     Dates: start: 20240716, end: 20240719

REACTIONS (3)
  - Platelet count decreased [Recovering/Resolving]
  - Mouth haemorrhage [Recovering/Resolving]
  - Epistaxis [Recovering/Resolving]

NARRATIVE: CASE EVENT DATE: 20240718
